FAERS Safety Report 6754222-5 (Version None)
Quarter: 2010Q2

REPORT INFORMATION
  Report Type: 
  Country: None (occurrence: None)
  Receive Date: 20100601
  Receipt Date: 20100524
  Transmission Date: 20101027
  Serious: Yes (Hospitalization)
  Sender: FDA-Public Use
  Company Number: 2010S1000341-002

PATIENT
  Age: 67 Year
  Sex: Male

DRUGS (10)
  1. LIVALO [Suspect]
     Indication: DYSLIPIDAEMIA
     Dosage: 1MG, PO
     Route: 048
     Dates: start: 20100309, end: 20100408
  2. ACETYLSALICYLIC ACID [Concomitant]
  3. LOSARTAN POTASSIUM [Concomitant]
  4. NIFEDIPINE [Concomitant]
  5. CILOSTAZOL [Concomitant]
  6. LANSOPRAZOLE [Concomitant]
  7. TELMISARTAN [Concomitant]
  8. CLOPIDOGREL BISULFATE [Concomitant]
  9. NICORANDIL [Concomitant]
  10. SULTAMICILLIN TOSILATE HYDRATE [Concomitant]

REACTIONS (10)
  - ALANINE AMINOTRANSFERASE INCREASED [None]
  - AORTITIS [None]
  - ASPARTATE AMINOTRANSFERASE INCREASED [None]
  - BLOOD ALKALINE PHOSPHATASE INCREASED [None]
  - C-REACTIVE PROTEIN INCREASED [None]
  - CORONARY ARTERY STENOSIS [None]
  - DRUG EFFECT DECREASED [None]
  - GAMMA-GLUTAMYLTRANSFERASE INCREASED [None]
  - HEPATIC FUNCTION ABNORMAL [None]
  - PYREXIA [None]
